FAERS Safety Report 25089432 (Version 1)
Quarter: 2025Q1

REPORT INFORMATION
  Report Type: Spontaneous
  Country: US (occurrence: US)
  Receive Date: 20250318
  Receipt Date: 20250318
  Transmission Date: 20250408
  Serious: Yes (Other)
  Sender: CSL BEHRING
  Company Number: US-BEH-2025198816

PATIENT
  Sex: Male

DRUGS (3)
  1. HIZENTRA [Suspect]
     Active Substance: HUMAN IMMUNOGLOBULIN G
     Indication: Hypogammaglobulinaemia
     Dosage: 8 G, QW
     Route: 058
  2. SYNTHROID [Concomitant]
     Active Substance: LEVOTHYROXINE SODIUM
  3. CANNABIDIOL [Concomitant]
     Active Substance: CANNABIDIOL

REACTIONS (5)
  - Cellulitis staphylococcal [Unknown]
  - Cellulitis [Recovered/Resolved]
  - Rash [Recovered/Resolved]
  - Dry skin [Unknown]
  - External ear cellulitis [Recovered/Resolved]
